FAERS Safety Report 11742295 (Version 2)
Quarter: 2015Q4

REPORT INFORMATION
  Report Type: Spontaneous
  Country: US (occurrence: None)
  Receive Date: 20151113
  Receipt Date: 20151113
  Transmission Date: 20160304
  Serious: No
  Sender: FDA-Public Use
  Company Number: None

PATIENT
  Age: 15 Year
  Sex: Male
  Weight: 76 kg

DRUGS (1)
  1. LORAZEPAM. [Suspect]
     Active Substance: LORAZEPAM
     Indication: AGITATION
     Dosage: LESS THAN A YEAR
     Route: 048

REACTIONS (8)
  - Agitation [None]
  - Autism [None]
  - Irritable bowel syndrome [None]
  - Product substitution issue [None]
  - Insomnia [None]
  - Drug ineffective [None]
  - Aggression [None]
  - Gastrointestinal pain [None]

NARRATIVE: CASE EVENT DATE: 20151111
